FAERS Safety Report 5991541-4 (Version None)
Quarter: 2008Q4

REPORT INFORMATION
  Report Type: 
  Country: None (occurrence: None)
  Receive Date: 20081211
  Receipt Date: 20080430
  Transmission Date: 20090506
  Serious: No
  Sender: FDA-Public Use
  Company Number: US-AMGEN-KDL277202

PATIENT
  Sex: Female

DRUGS (1)
  1. ENBREL [Suspect]
     Indication: JUVENILE ARTHRITIS
     Route: 058
     Dates: start: 20030701

REACTIONS (5)
  - CALCIFIC DEPOSITS REMOVAL [None]
  - JOINT ARTHROPLASTY [None]
  - RHEUMATOID ARTHRITIS [None]
  - SINUSITIS [None]
  - TENDON OPERATION [None]
